FAERS Safety Report 16925509 (Version 1)
Quarter: 2019Q4

REPORT INFORMATION
  Report Type: Spontaneous
  Country: US (occurrence: US)
  Receive Date: 20190823
  Receipt Date: 20190823
  Transmission Date: 20200122
  Serious: No
  Sender: FDA-Public Use
  Company Number: None

PATIENT
  Age: 50 Year
  Sex: Female

DRUGS (1)
  1. REMICADE [Suspect]
     Active Substance: INFLIXIMAB
     Indication: HIDRADENITIS
     Dosage: ?          OTHER FREQUENCY:Q 6 WEEKS;OTHER ROUTE:PIV?
     Dates: start: 20190625

REACTIONS (2)
  - Lip pruritus [None]
  - Paraesthesia oral [None]

NARRATIVE: CASE EVENT DATE: 201908
